FAERS Safety Report 6616956-2 (Version None)
Quarter: 2010Q1

REPORT INFORMATION
  Report Type: 
  Country: None (occurrence: None)
  Receive Date: 20100301
  Receipt Date: 20100219
  Transmission Date: 20100710
  Serious: No
  Sender: FDA-Public Use
  Company Number: 511988

PATIENT
  Age: 50 Year
  Sex: Female
  Weight: 19.8948 kg

DRUGS (1)
  1. CIPROFLOXACIN 2 MG/ML, IN 5% DEXTROSE INJECTION USP (200 MG/100 ML + 4 [Suspect]
     Indication: DRUG USE FOR UNKNOWN INDICATION
     Dosage: 400MG, ONCE, INTRAVENOUS
     Route: 042
     Dates: start: 20100125, end: 20100125

REACTIONS (5)
  - INFUSION SITE ERYTHEMA [None]
  - INFUSION SITE PAIN [None]
  - INFUSION SITE URTICARIA [None]
  - INFUSION SITE WARMTH [None]
  - WRONG TECHNIQUE IN DRUG USAGE PROCESS [None]
